FAERS Safety Report 9628672 (Version 1)
Quarter: 2013Q4

REPORT INFORMATION
  Report Type: Spontaneous
  Country: GB (occurrence: GB)
  Receive Date: 20131017
  Receipt Date: 20131017
  Transmission Date: 20140711
  Serious: Yes (Disabling)
  Sender: FDA-Public Use
  Company Number: GB-BAYER-2013-122540

PATIENT
  Age: 48 Year
  Sex: Male
  Weight: 98 kg

DRUGS (3)
  1. CIPROFLOXACIN [Suspect]
     Dosage: UNK
     Route: 048
     Dates: start: 20121015, end: 20121125
  2. DICLOFENAC [Concomitant]
     Dosage: UNK
     Dates: start: 20121028, end: 20121123
  3. TAMSULOSIN [Concomitant]
     Dosage: UNK
     Dates: start: 20121013, end: 20121229

REACTIONS (10)
  - Eye disorder [Not Recovered/Not Resolved]
  - Eye pain [Not Recovered/Not Resolved]
  - Gingival recession [Not Recovered/Not Resolved]
  - Back pain [Not Recovered/Not Resolved]
  - Myalgia [Not Recovered/Not Resolved]
  - Pain in extremity [Not Recovered/Not Resolved]
  - Pelvic pain [Not Recovered/Not Resolved]
  - Tendon pain [Not Recovered/Not Resolved]
  - Tinnitus [Not Recovered/Not Resolved]
  - Arthralgia [Not Recovered/Not Resolved]
